FAERS Safety Report 6505044-1 (Version None)
Quarter: 2009Q4

REPORT INFORMATION
  Report Type: 
  Country: None (occurrence: None)
  Receive Date: 20091218
  Receipt Date: 20091209
  Transmission Date: 20100525
  Serious: Yes (Death)
  Sender: FDA-Public Use
  Company Number: HK-JNJFOC-20091008037

PATIENT
  Sex: Male
  Weight: 50 kg

DRUGS (35)
  1. DORIPENEM [Suspect]
     Indication: DRUG USE FOR UNKNOWN INDICATION
     Route: 041
     Dates: start: 20091009, end: 20091017
  2. RANITIDINE [Concomitant]
     Indication: PROPHYLAXIS
     Route: 042
  3. HYDROCORTISONE [Concomitant]
     Indication: SEPSIS
     Route: 042
  4. MORPHINE [Concomitant]
     Indication: PROCEDURAL PAIN
     Route: 042
  5. VITRIMIX [Concomitant]
  6. VANCOMYCIN [Concomitant]
     Route: 042
  7. VANCOMYCIN [Concomitant]
     Route: 042
  8. FLUCONAZOLE [Concomitant]
     Indication: PERITONITIS
     Route: 042
  9. ALBUMIN (HUMAN) [Concomitant]
     Indication: HYPOALBUMINAEMIA
     Route: 042
  10. VITAMIN K1 [Concomitant]
     Indication: COAGULOPATHY
     Route: 042
  11. PROPOFOL [Concomitant]
     Indication: SEDATION
     Route: 042
  12. SODIUM BICARBONATE [Concomitant]
     Route: 042
  13. SODIUM BICARBONATE [Concomitant]
     Route: 042
  14. SODIUM BICARBONATE [Concomitant]
     Route: 042
  15. SODIUM BICARBONATE [Concomitant]
     Route: 042
  16. TAZOCIN [Concomitant]
     Indication: PERITONITIS
     Route: 042
  17. GELOFUSINE [Concomitant]
     Route: 042
  18. GELOFUSINE [Concomitant]
     Route: 042
  19. LASIX [Concomitant]
     Indication: OEDEMA
     Route: 042
  20. LASIX [Concomitant]
     Route: 042
  21. AMIODARONE HCL [Concomitant]
     Indication: ATRIAL FIBRILLATION
     Route: 042
  22. AMIODARONE HCL [Concomitant]
     Route: 042
  23. VOLUVEN [Concomitant]
     Route: 042
  24. ZINACEF [Concomitant]
     Indication: PERITONITIS
     Route: 042
  25. FLAGYL [Concomitant]
     Indication: PERITONITIS
     Route: 042
  26. FLAGYL [Concomitant]
     Route: 042
  27. MEPERIDINE HCL [Concomitant]
     Indication: PROCEDURAL PAIN
     Route: 030
  28. FORTUM [Concomitant]
     Indication: PNEUMONIA
     Route: 042
  29. DIGOXIN [Concomitant]
     Indication: ATRIAL FIBRILLATION
     Route: 042
  30. FENTANYL [Concomitant]
     Indication: PROCEDURAL PAIN
     Route: 042
  31. TIGECYCLINE [Concomitant]
     Indication: PERITONITIS
     Route: 042
  32. TIGECYCLINE [Concomitant]
     Route: 042
  33. AMIKACIN [Concomitant]
     Indication: PERITONITIS
     Route: 042
  34. ASPIRIN [Concomitant]
     Indication: MYOCARDIAL ISCHAEMIA
     Route: 048
  35. TRAMADOL HCL [Concomitant]
     Indication: PROCEDURAL PAIN
     Route: 060

REACTIONS (2)
  - MULTI-ORGAN FAILURE [None]
  - WOUND INFECTION FUNGAL [None]
